FAERS Safety Report 5065317-9 (Version None)
Quarter: 2006Q3

REPORT INFORMATION
  Report Type: 
  Country: None (occurrence: None)
  Receive Date: 20060731
  Receipt Date: 20060407
  Transmission Date: 20061208
  Serious: Yes (Other)
  Sender: FDA-Public Use
  Company Number: GRWYE544610APR06

PATIENT
  Sex: Male
  Weight: 100 kg

DRUGS (4)
  1. ENBREL [Suspect]
     Indication: PSORIASIS
     Route: 058
     Dates: start: 20050701, end: 20060406
  2. CANDESARTAN CILEXETIL [Concomitant]
     Dates: start: 20060201
  3. TRIMETAZIDINE [Concomitant]
     Dates: start: 20060425
  4. PRAVASTATIN SODIUM [Concomitant]
     Dates: start: 20060425

REACTIONS (1)
  - GAIT DISTURBANCE [None]
